FAERS Safety Report 16977229 (Version 3)
Quarter: 2020Q1

REPORT INFORMATION
  Report Type: Report from Study
  Country: None (occurrence: AR)
  Receive Date: 20191031
  Receipt Date: 20200327
  Transmission Date: 20200409
  Serious: Yes (Other)
  Sender: FDA-Public Use
  Company Number: AR-ABBVIE-19K-007-2984092-00

PATIENT
  Age: 57 Year
  Sex: Female

DRUGS (1)
  1. HUMIRA [Suspect]
     Active Substance: ADALIMUMAB
     Indication: PSORIATIC ARTHROPATHY
     Route: 058
     Dates: start: 20150821

REACTIONS (4)
  - Oedema peripheral [Not Recovered/Not Resolved]
  - Muscle atrophy [Recovering/Resolving]
  - Lipoma [Recovering/Resolving]
  - Lipoma [Recovering/Resolving]

NARRATIVE: CASE EVENT DATE: 2017
